FAERS Safety Report 7556333-3 (Version None)
Quarter: 2011Q2

REPORT INFORMATION
  Report Type: 
  Country: None (occurrence: None)
  Receive Date: 20110620
  Receipt Date: 20110609
  Transmission Date: 20111010
  Serious: Yes (Other)
  Sender: FDA-Public Use
  Company Number: TR-JNJFOC-20110401707

PATIENT
  Age: 44 Year
  Sex: Female
  Weight: 69 kg

DRUGS (8)
  1. DOXORUBICIN HCL [Suspect]
     Route: 042
     Dates: start: 20101112
  2. DEXAMETHASONE [Concomitant]
     Indication: PREMEDICATION
     Dates: start: 20101210
  3. DOXORUBICIN HCL [Suspect]
     Route: 042
     Dates: start: 20110203, end: 20110203
  4. PHENIRAMINE [Concomitant]
     Indication: PREMEDICATION
     Dates: start: 20101210
  5. BENEXOL B12 [Concomitant]
  6. DOXORUBICIN HCL [Suspect]
     Indication: OVARIAN CANCER
     Route: 042
     Dates: start: 20110106
  7. DOXORUBICIN HCL [Suspect]
     Route: 042
     Dates: start: 20101210
  8. ONDANSETRON [Concomitant]
     Indication: PREMEDICATION
     Route: 065
     Dates: start: 20101210

REACTIONS (2)
  - HYPERCHLORHYDRIA [None]
  - PIGMENTATION DISORDER [None]
